FAERS Safety Report 22124472 (Version 2)
Quarter: 2023Q2

REPORT INFORMATION
  Report Type: Spontaneous
  Country: US (occurrence: US)
  Receive Date: 20230322
  Receipt Date: 20230420
  Transmission Date: 20230722
  Serious: No
  Sender: FDA-Public Use
  Company Number: US-PFIZER INC-202300122283

PATIENT
  Age: 72 Year
  Weight: 56.689 kg

DRUGS (5)
  1. PAXLOVID [Suspect]
     Active Substance: NIRMATRELVIR\RITONAVIR
     Indication: COVID-19 treatment
     Dosage: [PF-07321332 300 MG]/[RITONAVIR 100 MG]; 2X/DAY
     Route: 048
     Dates: start: 20230309, end: 20230313
  2. DEXAMETHASONE [Suspect]
     Active Substance: DEXAMETHASONE
     Indication: Inflammation
     Dosage: 4 MG, DAILY
     Dates: start: 20230309, end: 20230313
  3. CAPRON DM [Concomitant]
     Active Substance: DEXTROMETHORPHAN HYDROBROMIDE\PYRILAMINE MALEATE
     Indication: Antitussive therapy
     Dosage: 5 ML, AS NEEDED
     Dates: start: 20230309, end: 20230315
  4. CAPRON DM [Concomitant]
     Active Substance: DEXTROMETHORPHAN HYDROBROMIDE\PYRILAMINE MALEATE
     Indication: Antiallergic therapy
  5. ZOFRAN [Concomitant]
     Active Substance: ONDANSETRON HYDROCHLORIDE
     Indication: Nausea
     Dosage: 4 MG, AS NEEDED
     Dates: start: 20230309, end: 20230318

REACTIONS (6)
  - COVID-19 [Recovered/Resolved]
  - Disease recurrence [Recovered/Resolved]
  - Feeling abnormal [Recovered/Resolved]
  - Sinus congestion [Recovered/Resolved]
  - Hypersomnia [Recovered/Resolved]
  - Ear pain [Recovered/Resolved]

NARRATIVE: CASE EVENT DATE: 20230314
